FAERS Safety Report 21500061 (Version 6)
Quarter: 2022Q4

REPORT INFORMATION
  Report Type: Report from Study
  Country: JP (occurrence: JP)
  Receive Date: 20221024
  Receipt Date: 20221227
  Transmission Date: 20230113
  Serious: Yes (Other)
  Sender: FDA-Public Use
  Company Number: JP-PFIZER INC-PV202200085272

PATIENT
  Age: 75 Year
  Sex: Male
  Weight: 49.5 kg

DRUGS (23)
  1. ENCORAFENIB [Suspect]
     Active Substance: ENCORAFENIB
     Indication: Colorectal cancer metastatic
     Dosage: 300 MG, ONCE DAILY
     Route: 048
     Dates: start: 20220414
  2. CETUXIMAB [Suspect]
     Active Substance: CETUXIMAB
     Indication: Colorectal cancer metastatic
     Dosage: 700 MG, EVERY 2 WEEKS?
     Route: 042
     Dates: start: 20220414
  3. FLUOROURACIL [Suspect]
     Active Substance: FLUOROURACIL
     Indication: Colorectal cancer metastatic
     Dosage: 560 MG, EVERY 2 WEEKS
     Route: 040
     Dates: start: 20220414, end: 20220414
  4. FLUOROURACIL [Suspect]
     Active Substance: FLUOROURACIL
     Dosage: 3360 MG, EVERY 2 WEEKS, IV INFUSION
     Route: 042
     Dates: start: 20220414, end: 20220414
  5. OXALIPLATIN [Suspect]
     Active Substance: OXALIPLATIN
     Indication: Colorectal cancer metastatic
     Dosage: 110 MG, EVERY 2 WEEKS
     Route: 042
     Dates: start: 20220414, end: 20220414
  6. LEVOLEUCOVORIN CALCIUM [Suspect]
     Active Substance: LEVOLEUCOVORIN CALCIUM
     Indication: Colorectal cancer metastatic
     Dosage: 280 MG, EVERY 2 WEEKS
     Route: 042
     Dates: start: 20220414, end: 20220414
  7. VONOPRAZAN FUMARATE [Concomitant]
     Active Substance: VONOPRAZAN FUMARATE
     Indication: Gastrooesophageal reflux prophylaxis
     Dosage: 20 MG, ONCE PER DAY
     Route: 048
     Dates: start: 20211210
  8. HYDROMORPHONE HYDROCHLORIDE [Concomitant]
     Active Substance: HYDROMORPHONE HYDROCHLORIDE
     Indication: Pain management
     Dosage: 1 MG, AS NEEDED
     Route: 048
     Dates: start: 20211210
  9. SYMPROIC [Concomitant]
     Active Substance: NALDEMEDINE
     Indication: Constipation
     Dosage: 0.2 MG, ONCE PER DAY
     Route: 048
     Dates: start: 20211210
  10. SODIUM PICOSULFATE [Concomitant]
     Active Substance: SODIUM PICOSULFATE
     Indication: Constipation
     Dosage: 1 ML SOLUTION, AS NEEDED
     Route: 048
     Dates: start: 20211210
  11. DEXAMETHASONE DIPROPIONATE [Concomitant]
     Active Substance: DEXAMETHASONE DIPROPIONATE
     Indication: Dermatitis
     Dosage: 1 APPLICATION, AS NEEDED
     Route: 061
     Dates: start: 202202
  12. GLYCOSAMINOGLYCANS [Concomitant]
     Active Substance: GLYCOSAMINOGLYCANS
     Indication: Dermatitis
     Dosage: SOFT OINTMENT, 1 APPLICATION, AS NEEDED
     Route: 061
     Dates: start: 202202
  13. GLYCOSAMINOGLYCANS [Concomitant]
     Active Substance: GLYCOSAMINOGLYCANS
     Indication: Dermatitis
     Dosage: LOTION, 1 APPLICATION, AS NEEDED
     Route: 061
     Dates: start: 202202
  14. ANAMORELIN HYDROCHLORIDE [Concomitant]
     Active Substance: ANAMORELIN HYDROCHLORIDE
     Indication: Cachexia
     Dosage: 100 MG, ONCE PER DAY
     Route: 048
     Dates: start: 20211210
  15. HYDROMORPHONE HYDROCHLORIDE [Concomitant]
     Active Substance: HYDROMORPHONE HYDROCHLORIDE
     Indication: Pain management
     Dosage: 4 MG, ONCE PER DAY
     Route: 048
     Dates: start: 20220329
  16. MAGNESIUM OXIDE [Concomitant]
     Active Substance: MAGNESIUM OXIDE
     Indication: Constipation
     Dosage: 990 MG, 3 TIMES PER DAY
     Route: 048
     Dates: start: 20220418
  17. FUROSEMIDE [Concomitant]
     Active Substance: FUROSEMIDE
     Indication: Nephrolithiasis
     Dosage: 20 MG, ONCE PER DAY
     Route: 048
     Dates: start: 20220512
  18. SPIRONOLACTONE [Concomitant]
     Active Substance: SPIRONOLACTONE
     Indication: Nephrolithiasis
     Dosage: 25 MG, ONCE PER DAY
     Route: 048
     Dates: start: 20220512
  19. ACETAMINOPHEN [Concomitant]
     Active Substance: ACETAMINOPHEN
     Indication: Urinary tract infection
     Dosage: 600 MG, AS NEEDED
     Route: 048
     Dates: start: 20220623
  20. LOXOPROFEN SODIUM DIHYDRATE [Concomitant]
     Active Substance: LOXOPROFEN SODIUM DIHYDRATE
     Indication: Pain management
     Dosage: 60 MG, AS NEEDED
     Route: 048
     Dates: start: 20220818
  21. FELBINAC [Concomitant]
     Active Substance: FELBINAC
     Indication: Pain management
     Dosage: PAP 70, 1 APPLICATION, AS NEEDED
     Route: 061
     Dates: start: 20220818
  22. TAMSULOSIN HYDROCHLORIDE [Concomitant]
     Active Substance: TAMSULOSIN HYDROCHLORIDE
     Indication: Benign prostatic hyperplasia
     Dosage: 0.2 MG, ONCE PER DAY
     Route: 048
     Dates: start: 20220926
  23. DUTASTERIDE [Concomitant]
     Active Substance: DUTASTERIDE
     Indication: Benign prostatic hyperplasia
     Dosage: 0.5 MG, ONCE PER DAY
     Route: 048
     Dates: start: 20220926

REACTIONS (2)
  - Second primary malignancy [Recovered/Resolved]
  - Squamous cell carcinoma of skin [Recovered/Resolved]

NARRATIVE: CASE EVENT DATE: 20221018
